FAERS Safety Report 6408842-8 (Version None)
Quarter: 2009Q4

REPORT INFORMATION
  Report Type: 
  Country: None (occurrence: None)
  Receive Date: 20091019
  Receipt Date: 20091008
  Transmission Date: 20100525
  Serious: Yes (Other)
  Sender: FDA-Public Use
  Company Number: 2008US001464

PATIENT
  Age: 4 Year
  Sex: Male
  Weight: 14.9 kg

DRUGS (6)
  1. AMBISOME [Suspect]
     Indication: BRONCHOPULMONARY ASPERGILLOSIS
     Dosage: 75 MG, UID/QD, IV DRIP; 100 MG, UID/QD, PARENTERAL
     Dates: start: 20080416, end: 20080501
  2. AMBISOME [Suspect]
     Indication: BRONCHOPULMONARY ASPERGILLOSIS
     Dosage: 75 MG, UID/QD, IV DRIP; 100 MG, UID/QD, PARENTERAL
     Dates: start: 20080401
  3. ITRACONAZOLE [Suspect]
     Indication: BRONCHOPULMONARY ASPERGILLOSIS
     Dosage: 50 MG, UID/QD, ORAL; 100 MG, UID/QD, ORAL; 150 MG, UID/QD, ORAL
     Route: 048
     Dates: start: 20071205, end: 20080424
  4. ITRACONAZOLE [Suspect]
     Indication: BRONCHOPULMONARY ASPERGILLOSIS
     Dosage: 50 MG, UID/QD, ORAL; 100 MG, UID/QD, ORAL; 150 MG, UID/QD, ORAL
     Route: 048
     Dates: start: 20080425, end: 20080430
  5. ITRACONAZOLE [Suspect]
     Indication: BRONCHOPULMONARY ASPERGILLOSIS
     Dosage: 50 MG, UID/QD, ORAL; 100 MG, UID/QD, ORAL; 150 MG, UID/QD, ORAL
     Route: 048
     Dates: start: 20080501
  6. SULFAMETHOXAZOLE AND TRIMETHOPRIM [Concomitant]

REACTIONS (6)
  - GAIT DISTURBANCE [None]
  - HYPOKALAEMIA [None]
  - RENAL FAILURE [None]
  - RENAL IMPAIRMENT [None]
  - RHABDOMYOLYSIS [None]
  - TREATMENT NONCOMPLIANCE [None]
